FAERS Safety Report 24414499 (Version 1)
Quarter: 2024Q4

REPORT INFORMATION
  Report Type: Spontaneous
  Country: CN (occurrence: CN)
  Receive Date: 20241009
  Receipt Date: 20241009
  Transmission Date: 20250115
  Serious: Yes (Other)
  Sender: ACCORD
  Company Number: None

PATIENT
  Age: 65 Year
  Sex: Female
  Weight: 42 kg

DRUGS (8)
  1. TRASTUZUMAB [Suspect]
     Active Substance: TRASTUZUMAB
     Indication: Breast cancer
     Dosage: 252 MILLIGRAM, QD
     Dates: start: 20240920, end: 20240920
  2. DOCETAXEL [Suspect]
     Active Substance: DOCETAXEL
     Indication: Breast cancer
     Dosage: 20 MILLIGRAM, QD
     Dates: start: 20240920, end: 20240920
  3. DEXAMETHASONE [Concomitant]
     Active Substance: DEXAMETHASONE
     Indication: Prophylaxis of nausea and vomiting
     Dosage: 7.5 MILLIGRAM, BID
     Route: 048
     Dates: start: 20240919, end: 20240919
  4. DIPHENHYDRAMINE [Concomitant]
     Active Substance: DIPHENHYDRAMINE
     Dosage: 20 MILLIGRAM
     Dates: start: 20240920, end: 20240920
  5. OMEPRAZOLE [Concomitant]
     Active Substance: OMEPRAZOLE
     Indication: Prophylaxis of nausea and vomiting
     Dosage: 40 MILLIGRAM, BID
     Route: 048
     Dates: start: 20240919, end: 20240919
  6. DEXAMETHASONE [Concomitant]
     Active Substance: DEXAMETHASONE
     Indication: Prophylaxis of nausea and vomiting
     Dosage: 7.5 MILLIGRAM, BID
     Route: 048
     Dates: start: 20240919, end: 20240919
  7. DOCETAXEL [Suspect]
     Active Substance: DOCETAXEL
     Indication: Breast cancer
     Dosage: 80 MILLIGRAM, QD
     Dates: start: 20240920, end: 20240920
  8. OMEPRAZOLE [Concomitant]
     Active Substance: OMEPRAZOLE
     Indication: Prophylaxis of nausea and vomiting
     Dosage: 40 MILLIGRAM, BID
     Route: 048
     Dates: start: 20240920, end: 20240920

REACTIONS (4)
  - Sleep disorder [Recovering/Resolving]
  - Vomiting [Recovered/Resolved]
  - Hypocalcaemia [Recovering/Resolving]
  - Nausea [Recovering/Resolving]

NARRATIVE: CASE EVENT DATE: 20240920
